FAERS Safety Report 14440220 (Version 1)
Quarter: 2018Q1

REPORT INFORMATION
  Report Type: Spontaneous
  Country: US (occurrence: US)
  Receive Date: 20180125
  Receipt Date: 20180125
  Transmission Date: 20180509
  Serious: No
  Sender: FDA-Public Use
  Company Number: US-ABBVIE-17K-163-1974009-00

PATIENT
  Sex: Female
  Weight: 52.21 kg

DRUGS (4)
  1. ENBREL [Suspect]
     Active Substance: ETANERCEPT
     Indication: PRODUCT USED FOR UNKNOWN INDICATION
     Route: 065
  2. LEFLUNOMIDE. [Suspect]
     Active Substance: LEFLUNOMIDE
     Indication: PRODUCT USED FOR UNKNOWN INDICATION
     Route: 065
  3. METHOTREXATE. [Suspect]
     Active Substance: METHOTREXATE
     Indication: ANKYLOSING SPONDYLITIS
     Route: 048
  4. HUMIRA [Suspect]
     Active Substance: ADALIMUMAB
     Indication: PRODUCT USED FOR UNKNOWN INDICATION
     Route: 058

REACTIONS (9)
  - Cardiac flutter [Unknown]
  - Lymphoedema [Unknown]
  - Abdominal pain upper [Unknown]
  - Peripheral venous disease [Unknown]
  - Soft tissue swelling [Unknown]
  - Drug ineffective [Unknown]
  - Pain [Unknown]
  - Staphylococcal infection [Not Recovered/Not Resolved]
  - Stomatitis [Unknown]
